FAERS Safety Report 4563774-5 (Version None)
Quarter: 2005Q1

REPORT INFORMATION
  Report Type: 
  Country: None (occurrence: None)
  Receive Date: 20050124
  Receipt Date: 20050113
  Transmission Date: 20050727
  Serious: Yes (Hospitalization)
  Sender: FDA-Public Use
  Company Number: 2005-BP-00563BP

PATIENT
  Sex: Female

DRUGS (2)
  1. CATAPRES [Suspect]
     Indication: HYPERTENSION
     Dosage: 0.9 MG (0.3 MG, 0.3 MG TID), PO
     Route: 048
     Dates: start: 20040322, end: 20050107
  2. VALSARTAN (VALSARTAN) [Concomitant]

REACTIONS (5)
  - ASTHENIA [None]
  - DIABETES MELLITUS [None]
  - HEART RATE ABNORMAL [None]
  - PAIN [None]
  - PANCREATITIS [None]
